FAERS Safety Report 10313525 (Version 1)
Quarter: 2014Q3

REPORT INFORMATION
  Report Type: Spontaneous
  Country: DK (occurrence: DK)
  Receive Date: 20140718
  Receipt Date: 20140718
  Transmission Date: 20150326
  Serious: Yes (Hospitalization, Other)
  Sender: FDA-Public Use
  Company Number: DK-PAR PHARMACEUTICAL, INC-2014SCPR009262

PATIENT

DRUGS (4)
  1. ADRENALIN [Suspect]
     Active Substance: EPINEPHRINE
     Indication: ARTHROPOD BITE
     Dosage: 1 MG, SINGLE, EPINEPHRINE OF A 1:10000 SOLUTION
  2. SOLU-CORTEF [Concomitant]
     Active Substance: HYDROCORTISONE SODIUM SUCCINATE
     Indication: FACE OEDEMA
  3. ADRENALIN [Suspect]
     Active Substance: EPINEPHRINE
     Indication: FACE OEDEMA
  4. SOLU-CORTEF [Concomitant]
     Active Substance: HYDROCORTISONE SODIUM SUCCINATE
     Indication: ARTHROPOD BITE
     Dosage: 100 MG, SINGLE

REACTIONS (6)
  - Stress cardiomyopathy [Recovered/Resolved]
  - Acute myocardial infarction [None]
  - Ventricular tachycardia [None]
  - Torsade de pointes [Recovered/Resolved]
  - Incorrect dose administered [Unknown]
  - Petit mal epilepsy [Recovered/Resolved]
